FAERS Safety Report 25750243 (Version 2)
Quarter: 2025Q3

REPORT INFORMATION
  Report Type: Report from Study
  Country: CA (occurrence: CA)
  Receive Date: 20250902
  Receipt Date: 20250922
  Transmission Date: 20251021
  Serious: Yes (Hospitalization)
  Sender: CSL BEHRING
  Company Number: CA-BEH-2025217125

PATIENT
  Age: 79 Year
  Sex: Male

DRUGS (1)
  1. VELTASSA [Suspect]
     Active Substance: PATIROMER
     Indication: Product used for unknown indication
     Dosage: 8.4 G, QD
     Route: 048
     Dates: start: 2023

REACTIONS (6)
  - Blood pressure decreased [Unknown]
  - Respiration abnormal [Unknown]
  - General physical health deterioration [Not Recovered/Not Resolved]
  - Blood pressure abnormal [Unknown]
  - Eating disorder [Unknown]
  - Product dose omission issue [Unknown]

NARRATIVE: CASE EVENT DATE: 20250826
